FAERS Safety Report 23648877 (Version 1)
Quarter: 2024Q1

REPORT INFORMATION
  Report Type: Spontaneous
  Country: US (occurrence: US)
  Receive Date: 20240319
  Receipt Date: 20240319
  Transmission Date: 20240410
  Serious: No
  Sender: FDA-Public Use
  Company Number: US-009507513-2403USA004379

PATIENT
  Age: 15 Year
  Sex: Female

DRUGS (3)
  1. NOXAFIL [Suspect]
     Active Substance: POSACONAZOLE
     Indication: Mucormycosis
     Dosage: 45 DAYS
     Route: 048
     Dates: start: 2008
  2. NOXAFIL [Suspect]
     Active Substance: POSACONAZOLE
     Dosage: 573 DAYS
  3. MICAFUNGIN [Concomitant]
     Active Substance: MICAFUNGIN SODIUM
     Indication: Mucormycosis
     Dosage: 45 DAYS
     Dates: start: 2008

REACTIONS (1)
  - Product use in unapproved indication [Unknown]

NARRATIVE: CASE EVENT DATE: 20080101
